FAERS Safety Report 6682521-4 (Version None)
Quarter: 2010Q2

REPORT INFORMATION
  Report Type: 
  Country: None (occurrence: None)
  Receive Date: 20100415
  Receipt Date: 20100407
  Transmission Date: 20101027
  Serious: Yes (Other)
  Sender: FDA-Public Use
  Company Number: RU-NOVOPROD-305757

PATIENT
  Sex: Female
  Weight: 82 kg

DRUGS (10)
  1. INSULIN DETEMIR FLEXPEN [Suspect]
     Indication: TYPE 2 DIABETES MELLITUS
     Dosage: 7 IU, QD
     Route: 058
     Dates: start: 20090408, end: 20100310
  2. INSULIN DETEMIR FLEXPEN [Suspect]
     Dosage: 7 UNK, UNK
     Dates: start: 20100314
  3. NOVORAPID FLEXPEN [Suspect]
     Indication: TYPE 2 DIABETES MELLITUS
     Dosage: 7 IU, QD
     Route: 058
     Dates: start: 20091016
  4. LOSARTAN POTASSIUM [Concomitant]
     Indication: HYPERTENSION
     Dosage: 50 MG, UNK
  5. HYDROCHLOROTHIAZIDE [Concomitant]
     Indication: HYPERTENSION
     Dosage: 12.5 MG, UNK
  6. AMIODARONE HCL [Concomitant]
     Indication: ARRHYTHMIA
  7. LANTUS [Concomitant]
  8. AMARYL [Concomitant]
  9. EGILOC [Concomitant]
  10. NORMODIPIN                         /00972401/ [Concomitant]

REACTIONS (1)
  - TACHYCARDIA PAROXYSMAL [None]
